FAERS Safety Report 4721068-9 (Version None)
Quarter: 2005Q3

REPORT INFORMATION
  Report Type: 
  Country: None (occurrence: None)
  Receive Date: 20050719
  Receipt Date: 20041020
  Transmission Date: 20060218
  Serious: Yes (Hospitalization, Other)
  Sender: FDA-Public Use
  Company Number: 2004242600US

PATIENT
  Age: 66 Year
  Sex: Female
  Weight: 59 kg

DRUGS (3)
  1. CELEBREX [Suspect]
     Indication: ARTHRALGIA
     Dosage: BID, ORAL
     Route: 048
     Dates: start: 20030320, end: 20030401
  2. PREMARIN [Concomitant]
  3. CITRACAL (CALCIUM CITRATE) [Concomitant]

REACTIONS (11)
  - ANAPHYLACTOID REACTION [None]
  - BURNING SENSATION [None]
  - DIARRHOEA [None]
  - DYSPNOEA [None]
  - HEADACHE [None]
  - INSOMNIA [None]
  - NAUSEA [None]
  - PRURITUS [None]
  - RASH PRURITIC [None]
  - SKIN REACTION [None]
  - VOMITING [None]
